FAERS Safety Report 5228190-1 (Version None)
Quarter: 2007Q1

REPORT INFORMATION
  Report Type: 
  Country: None (occurrence: None)
  Receive Date: 20070130
  Receipt Date: 20070117
  Transmission Date: 20070707
  Serious: Yes (Hospitalization)
  Sender: FDA-Public Use
  Company Number: 2006BI018421

PATIENT
  Age: 63 Year
  Sex: Female

DRUGS (1)
  1. AVONEX [Suspect]
     Indication: MULTIPLE SCLEROSIS
     Dosage: 30 UG; QW; IM
     Route: 030
     Dates: start: 20050211

REACTIONS (7)
  - BACK PAIN [None]
  - BRONCHITIS [None]
  - CONDITION AGGRAVATED [None]
  - DYSSTASIA [None]
  - MULTIPLE SCLEROSIS [None]
  - MUSCLE SPASTICITY [None]
  - PARAPARESIS [None]
